FAERS Safety Report 8055840-7 (Version None)
Quarter: 2012Q1

REPORT INFORMATION
  Report Type: 
  Country: None (occurrence: None)
  Receive Date: 20120119
  Receipt Date: 20120119
  Transmission Date: 20120608
  Serious: Yes (Hospitalization)
  Sender: FDA-Public Use
  Company Number: None

PATIENT
  Sex: Female
  Weight: 68 kg

DRUGS (9)
  1. RYTHMOL [Concomitant]
  2. PEPCID [Concomitant]
  3. LIPITOR [Concomitant]
  4. PRADAXA [Suspect]
     Indication: ATRIAL FIBRILLATION
     Dosage: 150 MG
     Route: 048
     Dates: start: 20110701, end: 20120117
  5. KLOR-CON [Concomitant]
  6. LASIX [Concomitant]
  7. LOPRESSOR [Concomitant]
  8. SYNTHROID [Concomitant]
  9. ELAVIL [Concomitant]

REACTIONS (4)
  - ASTHENIA [None]
  - LETHARGY [None]
  - RECTAL HAEMORRHAGE [None]
  - ABDOMINAL PAIN [None]
